FAERS Safety Report 8534287-0 (Version None)
Quarter: 2012Q3

REPORT INFORMATION
  Report Type: 
  Country: None (occurrence: None)
  Receive Date: 20120724
  Receipt Date: 20120712
  Transmission Date: 20120928
  Serious: Yes (Hospitalization)
  Sender: FDA-Public Use
  Company Number: FR-BRISTOL-MYERS SQUIBB COMPANY-16769051

PATIENT
  Age: 90 Year
  Sex: Female

DRUGS (8)
  1. OMEPRAZOLE [Suspect]
     Route: 048
     Dates: end: 20120522
  2. TRIMETAZIDINE DIHYDROCHLORIDE [Suspect]
     Route: 048
     Dates: end: 20120522
  3. FLUTICASONE PROPIONATE/SALMETEROL [Concomitant]
  4. IRBESARTAN [Suspect]
     Indication: HYPERTENSION
     Route: 048
     Dates: end: 20120522
  5. HYPERIUM [Suspect]
     Indication: HYPERTENSION
     Route: 048
     Dates: end: 20120522
  6. TRAMADOL HYDROCHLORIDE [Suspect]
     Route: 048
     Dates: end: 20120522
  7. CALCIUM CARBONATE [Concomitant]
  8. LECTIL [Suspect]
     Dosage: TAB
     Route: 048
     Dates: start: 20120501, end: 20120522

REACTIONS (1)
  - HYPONATRAEMIA [None]
